FAERS Safety Report 4676469-4 (Version None)
Quarter: 2005Q2

REPORT INFORMATION
  Report Type: 
  Country: None (occurrence: None)
  Receive Date: 20050525
  Receipt Date: 20050516
  Transmission Date: 20051028
  Serious: Yes (Hospitalization, Other)
  Sender: FDA-Public Use
  Company Number: 2004087412

PATIENT
  Age: 35 Year
  Sex: Female

DRUGS (1)
  1. ZOLOFT [Suspect]
     Indication: DEPRESSION
     Dosage: 200 MG (100 MG, 2 IN 1 D), ORAL
     Route: 048
     Dates: start: 20000701

REACTIONS (10)
  - BRAIN NEOPLASM [None]
  - DRUG INEFFECTIVE [None]
  - INTRACRANIAL PRESSURE INCREASED [None]
  - MASS [None]
  - OPTIC NERVE DISORDER [None]
  - PAIN [None]
  - PAPILLOEDEMA [None]
  - PHOTOPHOBIA [None]
  - STRABISMUS [None]
  - WEIGHT INCREASED [None]
